FAERS Safety Report 10069138 (Version 1)
Quarter: 2014Q2

REPORT INFORMATION
  Report Type: Spontaneous
  Country: GB (occurrence: GB)
  Receive Date: 20140409
  Receipt Date: 20140409
  Transmission Date: 20141212
  Serious: Yes (Other)
  Sender: FDA-Public Use
  Company Number: GB-MYLANLABS-2014S1007279

PATIENT
  Age: 65 Year
  Sex: Female
  Weight: 62 kg

DRUGS (4)
  1. TAMOXIFEN [Suspect]
     Indication: BREAST CANCER STAGE II
     Route: 048
     Dates: start: 20131009, end: 20140303
  2. CALCICHEW D3 [Concomitant]
  3. CITALOPRAM [Concomitant]
  4. ZOPICLONE [Concomitant]
     Dosage: OCCASIONAL USE

REACTIONS (6)
  - Deep vein thrombosis [Recovering/Resolving]
  - Dyspnoea [Recovering/Resolving]
  - Weight increased [Not Recovered/Not Resolved]
  - Rash erythematous [Recovered/Resolved]
  - Erythema [Recovered/Resolved with Sequelae]
  - Cough [Recovering/Resolving]
